FAERS Safety Report 8551388-1 (Version None)
Quarter: 2012Q3

REPORT INFORMATION
  Report Type: 
  Country: None (occurrence: None)
  Receive Date: 20120730
  Receipt Date: 20120213
  Transmission Date: 20120928
  Serious: No
  Sender: FDA-Public Use
  Company Number: US-ALLERGAN-1202091US

PATIENT
  Sex: Female

DRUGS (1)
  1. LATISSE [Suspect]
     Indication: HYPOTRICHOSIS
     Dosage: 2 GTT, QHS
     Route: 061
     Dates: start: 20120101

REACTIONS (4)
  - OCULAR HYPERAEMIA [None]
  - MUSCLE TWITCHING [None]
  - EYE DISCHARGE [None]
  - CONJUNCTIVITIS INFECTIVE [None]
